FAERS Safety Report 16989183 (Version 7)
Quarter: 2024Q2

REPORT INFORMATION
  Report Type: Spontaneous
  Country: US (occurrence: US)
  Receive Date: 20191104
  Receipt Date: 20240627
  Transmission Date: 20240715
  Serious: Yes (Other)
  Sender: FDA-Public Use
  Company Number: US-PFIZER INC-2019473185

PATIENT
  Age: 50 Year
  Sex: Female
  Weight: 82.55 kg

DRUGS (7)
  1. XELJANZ XR [Suspect]
     Active Substance: TOFACITINIB CITRATE
     Indication: Rheumatoid arthritis
     Dosage: 11 MG, DAILY
     Route: 048
     Dates: start: 20180101
  2. XELJANZ XR [Suspect]
     Active Substance: TOFACITINIB CITRATE
     Dosage: 11 MG
     Route: 048
  3. XELJANZ XR [Suspect]
     Active Substance: TOFACITINIB CITRATE
     Dosage: 11 MG
     Route: 048
  4. ASPIRIN [Concomitant]
     Active Substance: ASPIRIN
     Dosage: 81 MG
  5. VITAMIN D3 [Concomitant]
     Active Substance: CHOLECALCIFEROL
     Dosage: 10000 IU
  6. DARIFENACIN [Concomitant]
     Active Substance: DARIFENACIN
     Dosage: 15 MG
  7. DULOXETINE HYDROCHLORIDE [Concomitant]
     Active Substance: DULOXETINE HYDROCHLORIDE
     Dosage: 20 MG

REACTIONS (6)
  - Cerebrovascular accident [Unknown]
  - Fall [Not Recovered/Not Resolved]
  - Rib fracture [Not Recovered/Not Resolved]
  - Sinusitis [Unknown]
  - Headache [Unknown]
  - Confusional state [Unknown]

NARRATIVE: CASE EVENT DATE: 20190101
